FAERS Safety Report 12418701 (Version 2)
Quarter: 2016Q2

REPORT INFORMATION
  Report Type: Spontaneous
  Country: US (occurrence: US)
  Receive Date: 20160531
  Receipt Date: 20160608
  Transmission Date: 20160815
  Serious: No
  Sender: FDA-Public Use
  Company Number: US-BAYER-2016-103818

PATIENT
  Age: 75 Year
  Sex: Female
  Weight: 68.48 kg

DRUGS (1)
  1. MIRALAX [Suspect]
     Active Substance: POLYETHYLENE GLYCOL 3350
     Indication: CONSTIPATION
     Dosage: 1 DF, QD FOR A MONTH
     Route: 048
     Dates: start: 2016

REACTIONS (2)
  - Bowel movement irregularity [None]
  - Product use issue [None]

NARRATIVE: CASE EVENT DATE: 2016
